FAERS Safety Report 4505176-3 (Version None)
Quarter: 2004Q4

REPORT INFORMATION
  Report Type: 
  Country: None (occurrence: None)
  Receive Date: 20041117
  Receipt Date: 20041117
  Transmission Date: 20050328
  Serious: Yes (Hospitalization, Other)
  Sender: FDA-Public Use
  Company Number: None

PATIENT
  Age: 31 Year
  Sex: Female

DRUGS (5)
  1. AFRIN [Suspect]
     Dosage: 2-3 SPRAYS QD
  2. SERTRALINE HCL [Concomitant]
  3. PEPTO-BISMOL [Concomitant]
  4. LANSOPRAZOLE [Concomitant]
  5. DOMPERIDONE [Concomitant]

REACTIONS (11)
  - ANGIOPATHY [None]
  - CAROTID ARTERY DISEASE [None]
  - HEADACHE [None]
  - HYPERACUSIS [None]
  - NAUSEA [None]
  - PAIN [None]
  - PHOTOPHOBIA [None]
  - VASOCONSTRICTION [None]
  - VASOSPASM [None]
  - VERTEBROBASILAR INSUFFICIENCY [None]
  - VOMITING [None]
